FAERS Safety Report 20745980 (Version 1)
Quarter: 2022Q2

REPORT INFORMATION
  Report Type: Spontaneous
  Country: US (occurrence: None)
  Receive Date: 20220425
  Receipt Date: 20220425
  Transmission Date: 20220721
  Serious: Yes (Hospitalization)
  Sender: FDA-Public Use
  Company Number: None

PATIENT
  Sex: Male

DRUGS (2)
  1. MEKINIST [Suspect]
     Active Substance: TRAMETINIB DIMETHYL SULFOXIDE
     Indication: Neoplasm malignant
     Dosage: FREQUENCY : DAILY;??TAKE 1 TABLET BY MOUTH DAILY. TAKE ON AN EMPTY STOMACH, AT LEAST 1 HOUR BEFORE A
     Route: 048
     Dates: start: 20220420
  2. TAFINLAR [Concomitant]
     Active Substance: DABRAFENIB MESYLATE

REACTIONS (2)
  - Hospitalisation [None]
  - Therapy interrupted [None]
